FAERS Safety Report 7034828-9 (Version None)
Quarter: 2010Q4

REPORT INFORMATION
  Report Type: 
  Country: None (occurrence: None)
  Receive Date: 20101008
  Receipt Date: 20100927
  Transmission Date: 20110411
  Serious: Yes (Hospitalization, Other)
  Sender: FDA-Public Use
  Company Number: US-SANOFI-AVENTIS-2010SA058428

PATIENT
  Age: 83 Year
  Sex: Male
  Weight: 73 kg

DRUGS (2)
  1. PLAVIX [Suspect]
     Indication: STENT PLACEMENT
     Route: 048
     Dates: start: 20040101
  2. NEXIUM [Concomitant]

REACTIONS (5)
  - ARTERIAL OCCLUSIVE DISEASE [None]
  - CLOSTRIDIUM DIFFICILE COLITIS [None]
  - GASTRIC ULCER [None]
  - INJECTION SITE HAEMORRHAGE [None]
  - PNEUMONIA [None]
